FAERS Safety Report 9290461 (Version 1)
Quarter: 2013Q2

REPORT INFORMATION
  Report Type: Spontaneous
  Country: DE (occurrence: DE)
  Receive Date: 20130515
  Receipt Date: 20130515
  Transmission Date: 20140414
  Serious: Yes (Death, Other)
  Sender: FDA-Public Use
  Company Number: DE-CELGENEUS-062-50794-13050692

PATIENT
  Age: 62 Year
  Sex: 0

DRUGS (3)
  1. VIDAZA [Suspect]
     Indication: ACUTE MYELOID LEUKAEMIA
     Route: 065
  2. VIDAZA [Suspect]
     Indication: MYELODYSPLASTIC SYNDROME
  3. IMMUNOSUPPRESSIVE AGENTS [Concomitant]
     Indication: PRODUCT USED FOR UNKNOWN INDICATION
     Route: 065

REACTIONS (4)
  - Death [Fatal]
  - Acute coronary syndrome [Unknown]
  - Fungal sepsis [Unknown]
  - Pancytopenia [Unknown]
